FAERS Safety Report 20163344 (Version 1)
Quarter: 2021Q4

REPORT INFORMATION
  Report Type: Spontaneous
  Country: FR (occurrence: FR)
  Receive Date: 20211209
  Receipt Date: 20211209
  Transmission Date: 20220303
  Serious: Yes (Congenital Anomaly, Other)
  Sender: FDA-Public Use
  Company Number: FR-ABBVIE-21K-056-4187821-00

PATIENT
  Sex: Male

DRUGS (9)
  1. VALPROATE SODIUM [Suspect]
     Active Substance: VALPROATE SODIUM
     Indication: Maternal exposure timing unspecified
     Route: 064
  2. VALPROATE SODIUM [Suspect]
     Active Substance: VALPROATE SODIUM
     Route: 064
  3. VALPROATE SODIUM [Suspect]
     Active Substance: VALPROATE SODIUM
     Route: 064
  4. PHENOBARBITAL [Suspect]
     Active Substance: PHENOBARBITAL
     Indication: Maternal exposure timing unspecified
     Route: 064
  5. CLOBAZAM [Suspect]
     Active Substance: CLOBAZAM
     Indication: Maternal exposure timing unspecified
     Route: 064
  6. CLOBAZAM [Suspect]
     Active Substance: CLOBAZAM
     Route: 064
  7. CLOBAZAM [Suspect]
     Active Substance: CLOBAZAM
     Route: 064
  8. CLONAZEPAM [Suspect]
     Active Substance: CLONAZEPAM
     Indication: Maternal exposure timing unspecified
     Route: 064
  9. FOLIC ACID [Concomitant]
     Active Substance: FOLIC ACID
     Indication: Maternal exposure timing unspecified
     Route: 064

REACTIONS (45)
  - Social (pragmatic) communication disorder [Unknown]
  - Anger [Unknown]
  - Autism spectrum disorder [Unknown]
  - Disturbance in attention [Unknown]
  - Attention deficit hyperactivity disorder [Unknown]
  - Cognitive disorder [Unknown]
  - Foetal anticonvulsant syndrome [Unknown]
  - Scoliosis [Unknown]
  - Dysmorphism [Unknown]
  - Hypertelorism [Unknown]
  - Pectus excavatum [Unknown]
  - Clinodactyly [Unknown]
  - Fine motor skill dysfunction [Unknown]
  - Limb malformation [Unknown]
  - Learning disorder [Unknown]
  - Behaviour disorder [Unknown]
  - Language disorder [Unknown]
  - Psychomotor skills impaired [Unknown]
  - Dysgraphia [Unknown]
  - Memory impairment [Unknown]
  - Executive dysfunction [Unknown]
  - Disruptive mood dysregulation disorder [Unknown]
  - Foot deformity [Unknown]
  - Hypertonia [Unknown]
  - Pelvic deformity [Unknown]
  - Limb asymmetry [Unknown]
  - Coordination abnormal [Unknown]
  - Apraxia [Unknown]
  - Ear, nose and throat disorder [Unknown]
  - Eye disorder [Unknown]
  - Conjunctivitis [Unknown]
  - Gait disturbance [Unknown]
  - Foot fracture [Unknown]
  - Visual impairment [Unknown]
  - Hyperaesthesia [Unknown]
  - Extraocular muscle disorder [Unknown]
  - Hyperacusis [Unknown]
  - Bradykinesia [Unknown]
  - Sleep disorder [Unknown]
  - Accommodation disorder [Unknown]
  - Astigmatism [Unknown]
  - Hypermetropia [Unknown]
  - Hypoacusis [Unknown]
  - Intentional self-injury [Unknown]
  - Foetal exposure during pregnancy [Unknown]
